FAERS Safety Report 5796114-4 (Version None)
Quarter: 2008Q3

REPORT INFORMATION
  Report Type: 
  Country: None (occurrence: None)
  Receive Date: 20080701
  Receipt Date: 20080623
  Transmission Date: 20090109
  Serious: Yes (Life-Threatening, Hospitalization)
  Sender: FDA-Public Use
  Company Number: DE-TEVA-172544ISR

PATIENT
  Sex: Male
  Weight: 83 kg

DRUGS (6)
  1. FLUOROURACIL [Suspect]
     Indication: COLORECTAL CANCER METASTATIC
     Route: 042
     Dates: start: 20071203, end: 20080506
  2. LEUCOVORIN CALCIUM [Suspect]
     Indication: COLORECTAL CANCER METASTATIC
     Route: 042
     Dates: start: 20071203, end: 20080506
  3. IRINOTECAN HCL [Suspect]
     Indication: COLORECTAL CANCER METASTATIC
     Dates: start: 20071203, end: 20080506
  4. CETUXIMAB [Suspect]
     Indication: COLORECTAL CANCER METASTATIC
     Dates: start: 20071203, end: 20080506
  5. METOCLOPRAMIDE HYDROCHLORIDE [Concomitant]
     Dates: start: 20071203, end: 20080506
  6. ONDANSETRON [Concomitant]
     Dates: start: 20071203, end: 20080506

REACTIONS (1)
  - CEREBROVASCULAR ACCIDENT [None]
